FAERS Safety Report 10343303 (Version 2)
Quarter: 2014Q3

REPORT INFORMATION
  Report Type: Spontaneous
  Country: US (occurrence: US)
  Receive Date: 20140725
  Receipt Date: 20140908
  Transmission Date: 20150326
  Serious: Yes (Hospitalization, Other)
  Sender: FDA-Public Use
  Company Number: US-ABBVIE-14P-163-1263513-00

PATIENT
  Age: 63 Year
  Sex: Male
  Weight: 112.59 kg

DRUGS (10)
  1. LIPITOR [Suspect]
     Active Substance: ATORVASTATIN CALCIUM
     Indication: CARDIOVASCULAR DISORDER
     Route: 048
     Dates: start: 2007, end: 2012
  2. FISH OIL [Concomitant]
     Active Substance: FISH OIL
     Indication: PRODUCT USED FOR UNKNOWN INDICATION
     Route: 048
  3. COQ10 [Concomitant]
     Active Substance: UBIDECARENONE
     Indication: PRODUCT USED FOR UNKNOWN INDICATION
  4. ASPIRIN. [Concomitant]
     Active Substance: ASPIRIN
     Indication: PRODUCT USED FOR UNKNOWN INDICATION
     Dosage: AT HOUR OF SLEEP WITH NIASPAN ER
     Route: 048
     Dates: start: 2001
  5. NIASPAN [Suspect]
     Active Substance: NIACIN
     Indication: CARDIOVASCULAR DISORDER
     Route: 048
     Dates: start: 2001, end: 2012
  6. NIASPAN [Suspect]
     Active Substance: NIACIN
     Route: 048
  7. AMIODARONE [Concomitant]
     Active Substance: AMIODARONE
     Indication: PRODUCT USED FOR UNKNOWN INDICATION
  8. METOPROLOL [Concomitant]
     Active Substance: METOPROLOL
     Indication: PRODUCT USED FOR UNKNOWN INDICATION
  9. NIASPAN [Suspect]
     Active Substance: NIACIN
     Indication: PERIPHERAL VASCULAR DISORDER
     Dosage: TAKING AT HOUR OF SLEEP WITH ASA
     Route: 048
     Dates: start: 2012
  10. MULTI-VITAMINS VITAFIT [Concomitant]
     Indication: PRODUCT USED FOR UNKNOWN INDICATION

REACTIONS (34)
  - Gait disturbance [Recovered/Resolved]
  - Glomerular filtration rate decreased [Unknown]
  - High density lipoprotein decreased [Unknown]
  - Peripheral arterial occlusive disease [Not Recovered/Not Resolved]
  - Flushing [Recovering/Resolving]
  - Blood cholesterol increased [Unknown]
  - Microalbuminuria [Unknown]
  - Blood glucose decreased [Not Recovered/Not Resolved]
  - Glycosylated haemoglobin increased [Unknown]
  - High density lipoprotein decreased [Unknown]
  - Monocyte count increased [Unknown]
  - Arterial disorder [Recovered/Resolved]
  - Blood triglycerides increased [Unknown]
  - C-reactive protein increased [Unknown]
  - Aortic aneurysm [Recovered/Resolved]
  - Therapeutic response changed [Not Recovered/Not Resolved]
  - Cognitive disorder [Recovered/Resolved]
  - Disturbance in attention [Recovered/Resolved]
  - Angiopathy [Not Recovered/Not Resolved]
  - Gait disturbance [Not Recovered/Not Resolved]
  - Coronary artery disease [Unknown]
  - Aortic aneurysm [Unknown]
  - Red blood cell count increased [Unknown]
  - Total cholesterol/HDL ratio decreased [Unknown]
  - Blood glucose increased [Unknown]
  - Blood creatinine increased [Unknown]
  - Low density lipoprotein increased [Unknown]
  - Blood testosterone decreased [Unknown]
  - Blood creatine increased [Unknown]
  - Blood cholesterol decreased [Unknown]
  - Blood sodium decreased [Unknown]
  - Diabetes mellitus [Recovered/Resolved]
  - Haematocrit [Unknown]
  - Blood cholesterol increased [Unknown]

NARRATIVE: CASE EVENT DATE: 2001
